FAERS Safety Report 19226946 (Version 1)
Quarter: 2021Q2

REPORT INFORMATION
  Report Type: Report from Study
  Country: CO (occurrence: CO)
  Receive Date: 20210506
  Receipt Date: 20210506
  Transmission Date: 20210717
  Serious: Yes (Other)
  Sender: FDA-Public Use
  Company Number: CO-JNJFOC-20210458753

PATIENT
  Age: 39 Year
  Sex: Female
  Weight: 68 kg

DRUGS (8)
  1. METHOTREXATE. [Concomitant]
     Active Substance: METHOTREXATE
  2. FOLIC ACID. [Concomitant]
     Active Substance: FOLIC ACID
  3. LEVOTHYROXINE. [Concomitant]
     Active Substance: LEVOTHYROXINE
  4. METHADONE [Concomitant]
     Active Substance: METHADONE HYDROCHLORIDE
  5. FERROUS SULFATE. [Concomitant]
     Active Substance: FERROUS SULFATE
  6. OXYCODONE [Concomitant]
     Active Substance: OXYCODONE
  7. SIMPONI [Suspect]
     Active Substance: GOLIMUMAB
     Indication: ANKYLOSING SPONDYLITIS
     Dosage: LAST APPLICATION 19?APR?2021
     Route: 058
     Dates: start: 20140106
  8. TRAZODONE [Concomitant]
     Active Substance: TRAZODONE HYDROCHLORIDE

REACTIONS (5)
  - Headache [Recovering/Resolving]
  - Spinal operation [Recovering/Resolving]
  - Patient-device incompatibility [Recovering/Resolving]
  - Influenza [Recovering/Resolving]
  - Procedural pain [Recovering/Resolving]

NARRATIVE: CASE EVENT DATE: 202104
